FAERS Safety Report 14966945 (Version 1)
Quarter: 2018Q2

REPORT INFORMATION
  Report Type: Spontaneous
  Country: FR (occurrence: FR)
  Receive Date: 20180604
  Receipt Date: 20180604
  Transmission Date: 20180711
  Serious: Yes (Life-Threatening)
  Sender: FDA-Public Use
  Company Number: FR-TEVA-2018-FR-900490

PATIENT
  Age: 57 Year
  Sex: Male
  Weight: 74 kg

DRUGS (6)
  1. MODECATE [Suspect]
     Active Substance: FLUPHENAZINE DECANOATE
     Indication: SCHIZOPHRENIA
     Route: 030
     Dates: start: 20100326, end: 201012
  2. LOXAPAC 50 MG, COMPRIM? PELLICUL? [Suspect]
     Active Substance: LOXAPINE SUCCINATE
     Indication: SCHIZOPHRENIA
     Dosage: 1 DOSAGE FORMS DAILY;
     Route: 048
     Dates: start: 20100326, end: 201012
  3. PARKINANE L P 5 MG, G?LULE ? LIB?RATION PROLONG?E [Suspect]
     Active Substance: TRIHEXYPHENIDYL HYDROCHLORIDE
     Indication: DYSKINESIA
     Dosage: 1 DOSAGE FORMS DAILY;
     Route: 048
     Dates: start: 20100326, end: 2012
  4. PIPORTIL [Suspect]
     Active Substance: PIPOTIAZINE
     Indication: SCHIZOPHRENIA
     Dosage: 3 DOSAGE FORMS DAILY;
     Route: 048
  5. OLANZAPINE. [Suspect]
     Active Substance: OLANZAPINE
     Indication: SCHIZOPHRENIA
     Dosage: 20 MILLIGRAM DAILY;
     Route: 048
  6. TERCIAN 100 MG, COMPRIM? PELLICUL? S?CABLE [Suspect]
     Active Substance: CYAMEMAZINE
     Indication: SCHIZOPHRENIA
     Dosage: 1 DOSAGE FORMS DAILY;
     Route: 048
     Dates: start: 20100326

REACTIONS (1)
  - Non-Hodgkin^s lymphoma [Not Recovered/Not Resolved]

NARRATIVE: CASE EVENT DATE: 20170626
